FAERS Safety Report 5965222-7 (Version None)
Quarter: 2008Q4

REPORT INFORMATION
  Report Type: 
  Country: None (occurrence: None)
  Receive Date: 20081124
  Receipt Date: 20081124
  Transmission Date: 20090506
  Serious: Yes (Life-Threatening, Other)
  Sender: FDA-Public Use
  Company Number: None

PATIENT
  Age: 48 Year
  Sex: Female
  Weight: 100.2449 kg

DRUGS (1)
  1. PROAIR HFA [Suspect]
     Indication: BRONCHITIS CHRONIC
     Dosage: 2 PUFFS 6 HOURS INHAL
     Dates: start: 20081001, end: 20081121

REACTIONS (8)
  - DEVICE INEFFECTIVE [None]
  - DEVICE MALFUNCTION [None]
  - DRUG INEFFECTIVE [None]
  - DYSPNOEA [None]
  - GLOSSITIS [None]
  - PANIC REACTION [None]
  - PRODUCT QUALITY ISSUE [None]
  - THERAPEUTIC RESPONSE DECREASED [None]
